FAERS Safety Report 9467642 (Version 1)
Quarter: 2013Q3

REPORT INFORMATION
  Report Type: Spontaneous
  Country: US (occurrence: None)
  Receive Date: 20130819
  Receipt Date: 20130819
  Transmission Date: 20140515
  Serious: Yes (Disabling, Other)
  Sender: FDA-Public Use
  Company Number: None

PATIENT
  Age: 45 Year
  Sex: Male
  Weight: 79.38 kg

DRUGS (1)
  1. MEFLOQUINE [Suspect]
     Indication: MALARIA PROPHYLAXIS
     Dosage: 1 PILL WEEKLY  AS NEEDED  TAKEN BY MOUTH?APPX 5 YEARS
     Route: 048

REACTIONS (4)
  - Depression [None]
  - Anxiety [None]
  - Dizziness [None]
  - Vertigo [None]
